FAERS Safety Report 7522173-4 (Version None)
Quarter: 2011Q2

REPORT INFORMATION
  Report Type: 
  Country: None (occurrence: None)
  Receive Date: 20110603
  Receipt Date: 20110401
  Transmission Date: 20111010
  Serious: No
  Sender: FDA-Public Use
  Company Number: US-BAYER-2011-029746

PATIENT

DRUGS (3)
  1. ALEVE (CAPLET) [Suspect]
     Indication: PAIN
     Dosage: BOTTLE COUNT 100S
     Route: 048
  2. GLYBURIDE [Concomitant]
  3. METOPROLOL TARTRATE [Concomitant]

REACTIONS (1)
  - PAIN [None]
